FAERS Safety Report 16161494 (Version 1)
Quarter: 2019Q2

REPORT INFORMATION
  Report Type: Spontaneous
  Country: TH (occurrence: TH)
  Receive Date: 20190405
  Receipt Date: 20190405
  Transmission Date: 20190711
  Serious: Yes (Other)
  Sender: FDA-Public Use
  Company Number: TH-ALKEM LABORATORIES LIMITED-TH-ALKEM-2019-00835

PATIENT
  Age: 22 Year
  Sex: Female

DRUGS (14)
  1. ITRACONAZOLE. [Suspect]
     Active Substance: ITRACONAZOLE
     Indication: ANTIFUNGAL PROPHYLAXIS
  2. CEFAZOLIN [Concomitant]
     Active Substance: CEFAZOLIN
     Indication: INFECTION
     Dosage: 50 MG/ML, UNK
     Route: 061
  3. KETOCONAZOLE. [Suspect]
     Active Substance: KETOCONAZOLE
     Indication: PARASITIC INFECTION PROPHYLAXIS
     Dosage: 2 %, HOURLY
     Route: 061
  4. VANCOMYCIN [Concomitant]
     Active Substance: VANCOMYCIN
     Indication: PROPHYLAXIS
     Dosage: 50 MG/ML, HOURLY
     Route: 061
  5. TERBINAFINE HYDROCHLORIDE. [Suspect]
     Active Substance: TERBINAFINE HYDROCHLORIDE
     Indication: ANTIFUNGAL PROPHYLAXIS
     Dosage: UNK
     Route: 048
  6. PROPAMIDINE ISETHIONATE [Suspect]
     Active Substance: PROPAMIDINE ISETHIONATE
     Indication: PARASITIC INFECTION PROPHYLAXIS
     Dosage: 0.1 %, HOURLY
     Route: 061
  7. AMIKACIN. [Concomitant]
     Active Substance: AMIKACIN
     Indication: INFECTION
     Dosage: 40 MG/ML, UNK
     Route: 061
  8. ITRACONAZOLE. [Suspect]
     Active Substance: ITRACONAZOLE
     Indication: PARASITIC INFECTION PROPHYLAXIS
     Dosage: 400 MG, QD
     Route: 048
  9. ITRACONAZOLE. [Suspect]
     Active Substance: ITRACONAZOLE
     Indication: PYTHIUM INSIDIOSUM INFECTION
  10. POLYHEXAMETHANE BIGUANIDE [Suspect]
     Active Substance: POLIHEXANIDE
     Indication: PARASITIC INFECTION PROPHYLAXIS
     Dosage: 0.02 %,  HOURLY
     Route: 061
  11. AMPHOTERICIN B. [Suspect]
     Active Substance: AMPHOTERICIN B
     Indication: ANTIFUNGAL PROPHYLAXIS
     Dosage: 0.3 %, UNK
     Route: 061
  12. NATAMYCIN [Suspect]
     Active Substance: NATAMYCIN
     Indication: ANTIFUNGAL PROPHYLAXIS
     Dosage: 5 %, UNK
     Route: 061
  13. CEFTAZIDIME. [Concomitant]
     Active Substance: CEFTAZIDIME
     Indication: PROPHYLAXIS
     Dosage: 50 MG/ML, HOURLY
     Route: 061
  14. TERBINAFINE HYDROCHLORIDE. [Suspect]
     Active Substance: TERBINAFINE HYDROCHLORIDE
     Indication: PYTHIUM INSIDIOSUM INFECTION

REACTIONS (12)
  - Ulcerative keratitis [None]
  - Eye excision [None]
  - Corneal transplant [None]
  - Pythium insidiosum infection [None]
  - Complications of transplant surgery [None]
  - Graft infection [None]
  - Glaucoma [None]
  - Neurotrophic keratopathy [None]
  - Condition aggravated [None]
  - Endophthalmitis [None]
  - Keratitis fungal [None]
  - Treatment failure [Unknown]
